FAERS Safety Report 6664352-4 (Version None)
Quarter: 2010Q2

REPORT INFORMATION
  Report Type: 
  Country: None (occurrence: None)
  Receive Date: 20100401
  Receipt Date: 20100324
  Transmission Date: 20101027
  Serious: Yes (Other)
  Sender: FDA-Public Use
  Company Number: PHHY2010IT18172

PATIENT
  Sex: Female

DRUGS (2)
  1. EXTAVIA [Suspect]
     Indication: MULTIPLE SCLEROSIS RELAPSE
     Dosage: 250 UG, QOD
     Route: 058
  2. CHOLESTIN (OMEGA-3 FATTY ACIDS/GERANIOL/TOCOTRIENOLS/CITROFLAVONOID) [Concomitant]

REACTIONS (4)
  - MOVEMENT DISORDER [None]
  - PAIN [None]
  - PANNICULITIS [None]
  - PYREXIA [None]
